FAERS Safety Report 22203372 (Version 1)
Quarter: 2023Q2

REPORT INFORMATION
  Report Type: Spontaneous
  Country: US (occurrence: None)
  Receive Date: 20230412
  Receipt Date: 20230412
  Transmission Date: 20230721
  Serious: No
  Sender: FDA-Public Use
  Company Number: 2023A067062

PATIENT
  Age: 763 Month
  Sex: Male
  Weight: 85.3 kg

DRUGS (2)
  1. PULMICORT FLEXHALER [Suspect]
     Active Substance: BUDESONIDE
     Indication: Eosinophilic oesophagitis
     Dosage: 1 DOSE IN THE MORNING AND 1 DOSE IN THE EVENING,
     Route: 055
     Dates: end: 20230315
  2. NYSTATIN [Concomitant]
     Active Substance: NYSTATIN

REACTIONS (4)
  - Tongue discomfort [Recovering/Resolving]
  - Candida infection [Unknown]
  - Product dose omission issue [Unknown]
  - Wrong technique in device usage process [Unknown]

NARRATIVE: CASE EVENT DATE: 20230101
